FAERS Safety Report 14298953 (Version 1)
Quarter: 2017Q4

REPORT INFORMATION
  Report Type: Spontaneous
  Country: US (occurrence: US)
  Receive Date: 20171216
  Receipt Date: 20171216
  Transmission Date: 20180321
  Serious: Yes (Life-Threatening, Hospitalization, Other)
  Sender: FDA-Public Use
  Company Number: None

PATIENT
  Age: 32 Year
  Sex: Male
  Weight: 99 kg

DRUGS (3)
  1. PREDNISONE. [Concomitant]
     Active Substance: PREDNISONE
  2. EPIPEN [Concomitant]
     Active Substance: EPINEPHRINE
  3. WELL AT WALGREENS IBUPROFEN SOFTGELS 80 PACK [Suspect]
     Active Substance: IBUPROFEN
     Indication: OROPHARYNGEAL PAIN
     Dosage: ?          QUANTITY:1 CAPSULE(S);?
     Route: 048

REACTIONS (5)
  - Chest pain [None]
  - Dyspnoea [None]
  - Chest discomfort [None]
  - Heart rate increased [None]
  - Lip swelling [None]

NARRATIVE: CASE EVENT DATE: 20171212
